FAERS Safety Report 4473499-2 (Version None)
Quarter: 2004Q3

REPORT INFORMATION
  Report Type: 
  Country: None (occurrence: None)
  Receive Date: 20040907
  Receipt Date: 20040809
  Transmission Date: 20050211
  Serious: Yes (Death)
  Sender: FDA-Public Use
  Company Number: USA040772098

PATIENT
  Age: 72 Year
  Sex: Female
  Weight: 66 kg

DRUGS (13)
  1. ALIMTA [Suspect]
     Indication: LUNG CANCER METASTATIC
     Dosage: 850 MG
     Dates: start: 20040708
  2. VITAMIN B-12 [Concomitant]
  3. FOLIC ACID [Concomitant]
  4. DECADRON [Concomitant]
  5. PROTONIX [Concomitant]
  6. ASPIRIN [Concomitant]
  7. ELAVIL [Concomitant]
  8. PREMARIN [Concomitant]
  9. PLAVIX [Concomitant]
  10. TUSSIONEX [Concomitant]
  11. LOPRESSOR [Concomitant]
  12. DIFLUCAN [Concomitant]
  13. POTASSIUM CHLORIDE [Concomitant]

REACTIONS (2)
  - CHROMATURIA [None]
  - DISEASE PROGRESSION [None]
